FAERS Safety Report 23223184 (Version 3)
Quarter: 2023Q4

REPORT INFORMATION
  Report Type: Spontaneous
  Country: CZ (occurrence: CZ)
  Receive Date: 20231123
  Receipt Date: 20231206
  Transmission Date: 20240109
  Serious: Yes (Other)
  Sender: FDA-Public Use
  Company Number: CZ-MYLANLABS-2023M1121786

PATIENT
  Age: 57 Year
  Sex: Female

DRUGS (4)
  1. PACLITAXEL [Suspect]
     Active Substance: PACLITAXEL
     Indication: Endometrial adenocarcinoma
     Dosage: 3 CYCLE OF COMBINED CHEMO PACLITAXEL+CARBOPLATIN
     Route: 065
  2. PACLITAXEL [Suspect]
     Active Substance: PACLITAXEL
     Indication: Chemotherapy
  3. CARBOPLATIN [Suspect]
     Active Substance: CARBOPLATIN
     Indication: Endometrial adenocarcinoma
     Dosage: 3 CYCLE OF COMBINED CHEMO PACLITAXEL+CARBOPLATIN
     Route: 065
  4. CARBOPLATIN [Suspect]
     Active Substance: CARBOPLATIN
     Dosage: UNK, (MONOTHERAPY 3 CYCLES)
     Route: 065

REACTIONS (7)
  - Secondary immunodeficiency [Unknown]
  - Lymphopenia [Not Recovered/Not Resolved]
  - Renal impairment [Unknown]
  - Pancytopenia [Unknown]
  - Toxicity to various agents [Unknown]
  - Drug intolerance [Unknown]
  - Off label use [Unknown]
